FAERS Safety Report 16780510 (Version 1)
Quarter: 2019Q3

REPORT INFORMATION
  Report Type: Spontaneous
  Country: CN (occurrence: CN)
  Receive Date: 20190906
  Receipt Date: 20190906
  Transmission Date: 20191005
  Serious: Yes (Death, Other)
  Sender: FDA-Public Use
  Company Number: CN-FRESENIUS KABI-FK201909674

PATIENT
  Age: 2 Year
  Sex: Female

DRUGS (3)
  1. PROPRANOLOL HYDROCHLORIDE (MANUFACTURER UNKNOWN) [Suspect]
     Active Substance: PROPRANOLOL HYDROCHLORIDE
     Indication: HAEMANGIOMA OF LIVER
     Route: 065
  2. CYCLOPHOSPHAMIDE. [Suspect]
     Active Substance: CYCLOPHOSPHAMIDE
     Indication: HAEMANGIOMA OF LIVER
     Dosage: UNKNOWN
     Route: 065
  3. VINCRISTINE [Suspect]
     Active Substance: VINCRISTINE
     Indication: HAEMANGIOMA OF LIVER
     Dosage: UNKNOWN
     Route: 065

REACTIONS (4)
  - Hepatic failure [Fatal]
  - Cardiac failure congestive [Fatal]
  - Treatment failure [Unknown]
  - Abdominal compartment syndrome [Fatal]
